FAERS Safety Report 13557547 (Version 3)
Quarter: 2017Q2

REPORT INFORMATION
  Report Type: Spontaneous
  Country: IN (occurrence: IN)
  Receive Date: 20170517
  Receipt Date: 20170613
  Transmission Date: 20170830
  Serious: Yes (Death, Other)
  Sender: FDA-Public Use
  Company Number: IN-ABBVIE-17P-078-1978124-00

PATIENT
  Age: 1 Day
  Sex: Male
  Weight: 3.16 kg

DRUGS (3)
  1. AMIKACIN [Concomitant]
     Active Substance: AMIKACIN
     Indication: SEPSIS
     Route: 042
     Dates: start: 20170501, end: 20170502
  2. SURVANTA [Suspect]
     Active Substance: BERACTANT
     Indication: NEONATAL RESPIRATORY DISTRESS SYNDROME
     Dosage: ONCE VIA ET
     Route: 065
     Dates: start: 20170501
  3. SURVANTA [Suspect]
     Active Substance: BERACTANT
     Route: 065

REACTIONS (4)
  - Infection [Fatal]
  - Pyrexia [Unknown]
  - Sepsis [Unknown]
  - Shock [Unknown]

NARRATIVE: CASE EVENT DATE: 20170502
